FAERS Safety Report 11855887 (Version 2)
Quarter: 2015Q4

REPORT INFORMATION
  Report Type: Spontaneous
  Country: IT (occurrence: IT)
  Receive Date: 20151221
  Receipt Date: 20151228
  Transmission Date: 20160305
  Serious: Yes (Hospitalization)
  Sender: FDA-Public Use
  Company Number: IT-SA-2015SA214733

PATIENT
  Age: 61 Year
  Sex: Male

DRUGS (3)
  1. COUMADIN [Interacting]
     Active Substance: WARFARIN SODIUM
     Dosage: DIVISIBLE TABLET
     Route: 048
  2. PLAVIX [Suspect]
     Active Substance: CLOPIDOGREL BISULFATE
     Route: 048
  3. CORDARONE [Concomitant]
     Active Substance: AMIODARONE HYDROCHLORIDE
     Dosage: 200 MG
     Route: 048

REACTIONS (5)
  - Hyperhidrosis [Unknown]
  - Presyncope [Unknown]
  - Haemorrhoidal haemorrhage [Unknown]
  - Haematochezia [Unknown]
  - Drug interaction [Unknown]

NARRATIVE: CASE EVENT DATE: 20151031
